FAERS Safety Report 21018675 (Version 2)
Quarter: 2022Q2

REPORT INFORMATION
  Report Type: Spontaneous
  Country: GB (occurrence: GB)
  Receive Date: 20220628
  Receipt Date: 20220630
  Transmission Date: 20220721
  Serious: Yes (Hospitalization, Disabling, Other)
  Sender: FDA-Public Use
  Company Number: GB-MHRA-MED-202206241049096480-KGZPY

PATIENT

DRUGS (1)
  1. PREMARIN [Suspect]
     Active Substance: ESTROGENS, CONJUGATED
     Dosage: UNKNOWN

REACTIONS (4)
  - Jaundice [Not Recovered/Not Resolved]
  - Lethargy [Unknown]
  - Decreased appetite [Unknown]
  - Chromaturia [Unknown]

NARRATIVE: CASE EVENT DATE: 20220617
